FAERS Safety Report 8166543-2 (Version None)
Quarter: 2012Q1

REPORT INFORMATION
  Report Type: 
  Country: None (occurrence: None)
  Receive Date: 20120227
  Receipt Date: 20110519
  Transmission Date: 20120608
  Serious: Yes (Other)
  Sender: FDA-Public Use
  Company Number: US-BRISTOL-MYERS SQUIBB COMPANY-15678741

PATIENT
  Age: 62 Year
  Sex: Male

DRUGS (2)
  1. TAXOL [Suspect]
     Dosage: HOSPIRE
     Dates: start: 20110405
  2. XELODA [Suspect]

REACTIONS (4)
  - OXYGEN SATURATION DECREASED [None]
  - ERYTHEMA [None]
  - BACK PAIN [None]
  - NEOPLASM MALIGNANT [None]
